FAERS Safety Report 24107982 (Version 2)
Quarter: 2024Q3

REPORT INFORMATION
  Report Type: Spontaneous
  Country: CY (occurrence: CY)
  Receive Date: 20240718
  Receipt Date: 20240926
  Transmission Date: 20241016
  Serious: Yes (Other)
  Sender: BIOGEN
  Company Number: CY-BIOGEN-2024BI01273689

PATIENT
  Sex: Female

DRUGS (1)
  1. TYSABRI [Suspect]
     Active Substance: NATALIZUMAB
     Indication: Relapsing-remitting multiple sclerosis
     Route: 050
     Dates: start: 20221211

REACTIONS (2)
  - Plasma cell myeloma [Not Recovered/Not Resolved]
  - Ataxia [Unknown]
